FAERS Safety Report 5737375-7 (Version None)
Quarter: 2008Q2

REPORT INFORMATION
  Report Type: 
  Country: None (occurrence: None)
  Receive Date: 20080514
  Receipt Date: 20080327
  Transmission Date: 20081010
  Serious: Yes (Other)
  Sender: FDA-Public Use
  Company Number: US-BRISTOL-MYERS SQUIBB COMPANY-14039382

PATIENT
  Age: 47 Year
  Sex: Female

DRUGS (5)
  1. IXEMPRA FOR INJ [Suspect]
     Indication: BREAST CANCER METASTATIC
     Dosage: SECOND CYCLE ON 11-DEC-2007; THIRD CYCLE ON 02-JAN-2008.
     Route: 042
     Dates: start: 20071120
  2. NEULASTA [Concomitant]
     Dates: start: 20071212, end: 20071212
  3. CLINDAMYCIN HCL [Concomitant]
     Route: 048
  4. BENADRYL [Concomitant]
     Indication: PREMEDICATION
  5. PEPCID [Concomitant]
     Indication: PREMEDICATION

REACTIONS (4)
  - ANAEMIA [None]
  - FATIGUE [None]
  - LOCALISED INFECTION [None]
  - WHITE BLOOD CELL COUNT INCREASED [None]
